FAERS Safety Report 4637371-7 (Version None)
Quarter: 2005Q2

REPORT INFORMATION
  Report Type: 
  Country: None (occurrence: None)
  Receive Date: 20050328
  Receipt Date: 20050223
  Transmission Date: 20051028
  Serious: No
  Sender: FDA-Public Use
  Company Number: USA040977261

PATIENT
  Age: 14 Year
  Sex: Male
  Weight: 54 kg

DRUGS (5)
  1. SYMBYAX            OLANZAPINE 12 MG/ FLUOXETINE 25 MG [Suspect]
     Indication: BIPOLAR DISORDER
     Dates: start: 20040201, end: 20050204
  2. STRATTERA [Suspect]
     Indication: ATTENTION DEFICIT/HYPERACTIVITY DISORDER
     Dosage: 80 MG/1 DAY
     Dates: start: 20040701
  3. TOPAMAX [Concomitant]
  4. VITAMIN B COMPLEX CAP [Concomitant]
  5. WELLBUTRIN [Concomitant]

REACTIONS (12)
  - ABDOMINAL PAIN [None]
  - ANXIETY [None]
  - COLD SWEAT [None]
  - DEPRESSION [None]
  - FEELING HOT [None]
  - FLUSHING [None]
  - HEADACHE [None]
  - INFLUENZA [None]
  - MOOD SWINGS [None]
  - RETCHING [None]
  - VOMITING [None]
  - WEIGHT INCREASED [None]
